FAERS Safety Report 13748290 (Version 1)
Quarter: 2017Q3

REPORT INFORMATION
  Report Type: Spontaneous
  Country: US (occurrence: US)
  Receive Date: 20170713
  Receipt Date: 20170713
  Transmission Date: 20171127
  Serious: No
  Sender: FDA-Public Use
  Company Number: US-PFIZER INC-2017304785

PATIENT
  Age: 36 Year
  Sex: Female
  Weight: 113 kg

DRUGS (5)
  1. CHANTIX [Suspect]
     Active Substance: VARENICLINE TARTRATE
     Dosage: 1 MG, DOSE TWICE A DAY BY MOUTH
     Route: 048
     Dates: start: 20170628, end: 20170708
  2. OFLOXACIN. [Concomitant]
     Active Substance: OFLOXACIN
     Indication: ANTIBIOTIC PROPHYLAXIS
     Dosage: 0.3% SOLUTION 3 TIMES A DAY EAR DROPS
     Dates: start: 20170626
  3. CHANTIX [Suspect]
     Active Substance: VARENICLINE TARTRATE
     Indication: SMOKING CESSATION THERAPY
     Dosage: LOW DOSE
     Route: 048
  4. ZYRTEC [Concomitant]
     Active Substance: CETIRIZINE HYDROCHLORIDE
     Indication: NASAL CONGESTION
     Dosage: 10 MG, ONCE A DAY BY MOUTH
     Route: 048
     Dates: start: 201704, end: 20170626
  5. CEPHALEXIN. [Concomitant]
     Active Substance: CEPHALEXIN
     Indication: ANTIBIOTIC PROPHYLAXIS
     Dosage: 500 MG, ONCE EVERY 6 HOURS BY MOUTH
     Route: 048
     Dates: start: 20170626

REACTIONS (3)
  - Pruritus generalised [Not Recovered/Not Resolved]
  - Blister [Not Recovered/Not Resolved]
  - Burning sensation [Not Recovered/Not Resolved]
